FAERS Safety Report 7553913-6 (Version None)
Quarter: 2011Q2

REPORT INFORMATION
  Report Type: 
  Country: None (occurrence: None)
  Receive Date: 20110614
  Receipt Date: 20110614
  Transmission Date: 20111010
  Serious: Yes (Other)
  Sender: FDA-Public Use
  Company Number: None

PATIENT
  Age: 61 Year
  Sex: Female
  Weight: 44.9061 kg

DRUGS (1)
  1. AMANTADINE HCL [Suspect]
     Indication: FATIGUE
     Dosage: 100MG. AS NEEDED PO
     Route: 048
     Dates: start: 20110606, end: 20110606

REACTIONS (4)
  - PRODUCT QUALITY ISSUE [None]
  - PRODUCT SUBSTITUTION ISSUE [None]
  - JOINT SWELLING [None]
  - OEDEMA PERIPHERAL [None]
